FAERS Safety Report 5481132-6 (Version None)
Quarter: 2007Q4

REPORT INFORMATION
  Report Type: 
  Country: None (occurrence: None)
  Receive Date: 20071004
  Receipt Date: 20070921
  Transmission Date: 20080405
  Serious: Yes (Hospitalization, Disabling)
  Sender: FDA-Public Use
  Company Number: 235943K07USA

PATIENT
  Age: 40 Year
  Sex: Female

DRUGS (7)
  1. REBIF [Suspect]
     Indication: MULTIPLE SCLEROSIS
     Dosage: 22 MCG, 3 IN 1 WEEKS, SUBCUTANEOUS
     Route: 058
     Dates: start: 20060919
  2. REBIF [Suspect]
     Indication: MULTIPLE SCLEROSIS
     Dosage: 22 MCG, 3 IN 1 WEEKS, SUBCUTANEOUS
     Route: 058
     Dates: start: 20070901
  3. BACLOFEN [Concomitant]
  4. HYDROCODONE BITARTRATE [Concomitant]
  5. LYRICA [Concomitant]
  6. FLEXERIL [Concomitant]
  7. UNSPECIFIED ANTIBIOTIC (ANTIBIOTICS) [Concomitant]

REACTIONS (4)
  - CONDITION AGGRAVATED [None]
  - DYSURIA [None]
  - MYELITIS TRANSVERSE [None]
  - VOMITING [None]
